FAERS Safety Report 7414787-7 (Version None)
Quarter: 2011Q2

REPORT INFORMATION
  Report Type: 
  Country: None (occurrence: None)
  Receive Date: 20110414
  Receipt Date: 20110407
  Transmission Date: 20111010
  Serious: Yes (Hospitalization)
  Sender: FDA-Public Use
  Company Number: PL-PFIZER INC-2011077697

PATIENT
  Age: 6 Year
  Sex: Male

DRUGS (8)
  1. HYDROXYZINE [Suspect]
     Dosage: UNK
  2. PHENOBARBITAL [Suspect]
  3. GABAPENTIN [Suspect]
     Dosage: UNK
  4. LAMOTRIGINE [Suspect]
  5. NITRAZEPAM [Suspect]
  6. VIGABATRIN [Suspect]
  7. TOPIRAMATE [Suspect]
     Dosage: UNK
  8. LEVOMEPROMAZINE [Suspect]
     Dosage: UNK

REACTIONS (3)
  - DRUG INEFFECTIVE [None]
  - TONIC CONVULSION [None]
  - COMPLEX PARTIAL SEIZURES [None]
